FAERS Safety Report 20437704 (Version 1)
Quarter: 2022Q1

REPORT INFORMATION
  Report Type: Spontaneous
  Country: US (occurrence: None)
  Receive Date: 20220205
  Receipt Date: 20220205
  Transmission Date: 20220423
  Serious: Yes (Disabling, Other)
  Sender: FDA-Public Use
  Company Number: None

PATIENT
  Age: 29 Year
  Sex: Male
  Weight: 72 kg

DRUGS (15)
  1. SOTROVIMAB [Suspect]
     Active Substance: SOTROVIMAB
     Indication: COVID-19
     Dosage: ?OTHER QUANTITY : 1 INFUSION?
     Route: 042
     Dates: start: 20220204, end: 20220204
  2. LAMOTRIGINE [Concomitant]
     Active Substance: LAMOTRIGINE
  3. CITALOPRAM [Concomitant]
     Active Substance: CITALOPRAM HYDROBROMIDE
  4. Low Dose Naltrexone (compounded 4.5 mg capsule for chronic pain) [Concomitant]
  5. Amlodipine (2.5mg) [Concomitant]
  6. Dextroamphetamine (not Adderall variant [Concomitant]
  7. fexofenidine [Concomitant]
  8. pantoprazole (20mg [Concomitant]
  9. Amoxicillin (for bacterial infection that occurred prior to COVID-19) [Concomitant]
  10. NASACORT [Concomitant]
     Active Substance: TRIAMCINOLONE ACETONIDE
  11. BONINE [Concomitant]
     Active Substance: MECLIZINE HYDROCHLORIDE
  12. MUCINEX [Concomitant]
     Active Substance: GUAIFENESIN
  13. Mucinex cough drops [Concomitant]
  14. HOMEOPATHICS [Concomitant]
     Active Substance: HOMEOPATHICS
  15. delsym (but not on day of infusion or since infusion) [Concomitant]

REACTIONS (42)
  - Fibromyalgia [None]
  - Neuromuscular pain [None]
  - Pain [None]
  - Pain [None]
  - Cognitive disorder [None]
  - Fatigue [None]
  - Nasal congestion [None]
  - Oropharyngeal pain [None]
  - Irritability [None]
  - Confusional state [None]
  - Swelling face [None]
  - Fluid retention [None]
  - Thymus disorder [None]
  - Pain [None]
  - Gait disturbance [None]
  - Coordination abnormal [None]
  - Malaise [None]
  - Major depression [None]
  - Vision blurred [None]
  - Dry eye [None]
  - Paranasal sinus discomfort [None]
  - Sinus pain [None]
  - Angiopathy [None]
  - Sensory disturbance [None]
  - Discomfort [None]
  - Burning sensation [None]
  - Lymphadenopathy [None]
  - Hyperhidrosis [None]
  - Skin odour abnormal [None]
  - COVID-19 [None]
  - Condition aggravated [None]
  - Liver tenderness [None]
  - Neuralgia [None]
  - Dyspnoea [None]
  - Pulmonary congestion [None]
  - Wheezing [None]
  - Pain in jaw [None]
  - Infusion site erythema [None]
  - Dermatitis contact [None]
  - Infusion related reaction [None]
  - Dry throat [None]
  - Anger [None]

NARRATIVE: CASE EVENT DATE: 20220205
